FAERS Safety Report 15495205 (Version 3)
Quarter: 2018Q4

REPORT INFORMATION
  Report Type: Spontaneous
  Country: GB (occurrence: GB)
  Receive Date: 20181012
  Receipt Date: 20181219
  Transmission Date: 20190205
  Serious: Yes (Other)
  Sender: FDA-Public Use
  Company Number: PHHY2018GB121589

PATIENT
  Age: 45 Year
  Sex: Female

DRUGS (2)
  1. CODEINE PHOSPHATE [Suspect]
     Active Substance: CODEINE PHOSPHATE
     Indication: ANALGESIC THERAPY
     Route: 065
  2. MORPHINE [Suspect]
     Active Substance: MORPHINE
     Indication: ANAESTHESIA
     Route: 042

REACTIONS (7)
  - Drug hypersensitivity [Unknown]
  - Hypotension [Unknown]
  - Angioedema [Unknown]
  - Rash [Unknown]
  - Urticaria [Unknown]
  - Pruritus generalised [Unknown]
  - Wheezing [Unknown]
